FAERS Safety Report 4432400-8 (Version None)
Quarter: 2004Q3

REPORT INFORMATION
  Report Type: 
  Country: None (occurrence: None)
  Receive Date: 20040820
  Receipt Date: 20040806
  Transmission Date: 20050211
  Serious: Yes (Death)
  Sender: FDA-Public Use
  Company Number: 2004AP03883

PATIENT
  Age: 63 Year
  Sex: Female

DRUGS (13)
  1. IRESSA [Suspect]
     Indication: LUNG ADENOCARCINOMA
     Dosage: 250 MG DAILY PO
     Route: 048
     Dates: start: 20040707, end: 20040722
  2. GASTER D [Concomitant]
  3. LOXONIN [Concomitant]
  4. GASMOTIN [Concomitant]
  5. NOVAMIN [Concomitant]
  6. DEPAS [Concomitant]
  7. NORITREN [Concomitant]
  8. BAYMYCARD [Concomitant]
  9. FRANDOL [Concomitant]
  10. MS-TWICELON [Concomitant]
  11. RADIOTHERAPY [Concomitant]
  12. PACLITAXEL [Concomitant]
  13. CARBOPLATIN [Concomitant]

REACTIONS (11)
  - ATELECTASIS [None]
  - BLOOD PRESSURE DECREASED [None]
  - DEPRESSED LEVEL OF CONSCIOUSNESS [None]
  - DRUG INEFFECTIVE [None]
  - HEART RATE DECREASED [None]
  - HYPOXIA [None]
  - IMMUNODEFICIENCY [None]
  - INTERSTITIAL LUNG DISEASE [None]
  - PCO2 INCREASED [None]
  - PNEUMONIA BACTERIAL [None]
  - URINE OUTPUT DECREASED [None]
